FAERS Safety Report 9515421 (Version 2)
Quarter: 2013Q4

REPORT INFORMATION
  Report Type: Report from Study
  Country: AU (occurrence: AU)
  Receive Date: 20130911
  Receipt Date: 20131202
  Transmission Date: 20140711
  Serious: Yes (Hospitalization, Other)
  Sender: FDA-Public Use
  Company Number: PHHY2013AU099734

PATIENT
  Age: 63 Year
  Sex: Female

DRUGS (6)
  1. SANDOSTATIN LAR [Suspect]
     Indication: ACROMEGALY
     Dosage: 20 MG, UNK
     Route: 030
     Dates: start: 201207
  2. LEXAPRO [Concomitant]
     Indication: DEPRESSION
     Dosage: UNK UKN, UNK
  3. SOMAC [Concomitant]
     Indication: GASTROOESOPHAGEAL REFLUX DISEASE
     Dosage: 40 MG, DAILY
  4. THYROXINE [Concomitant]
     Indication: HYPOTHYROIDISM
     Dosage: 200 MG, QD
  5. NATURAL VITAMIN D [Concomitant]
     Dosage: UNK UKN, UNK
  6. VALIUM [Concomitant]
     Dosage: 2 MG, QD

REACTIONS (2)
  - Diverticulitis [Recovered/Resolved]
  - Abdominal pain [Recovered/Resolved]
